FAERS Safety Report 20872702 (Version 1)
Quarter: 2022Q2

REPORT INFORMATION
  Report Type: Spontaneous
  Country: US (occurrence: None)
  Receive Date: 20220525
  Receipt Date: 20220525
  Transmission Date: 20220720
  Serious: Yes (Life-Threatening, Hospitalization)
  Sender: FDA-Public Use
  Company Number: None

PATIENT
  Age: 74 Year
  Sex: Male

DRUGS (1)
  1. LUMASON [Suspect]
     Active Substance: SULFUR HEXAFLUORIDE
     Indication: Echocardiogram
     Route: 042

REACTIONS (4)
  - Cardiac arrest [None]
  - Unresponsive to stimuli [None]
  - Pulseless electrical activity [None]
  - Anaphylactic reaction [None]

NARRATIVE: CASE EVENT DATE: 20220113
